FAERS Safety Report 15167067 (Version 1)
Quarter: 2018Q3

REPORT INFORMATION
  Report Type: Spontaneous
  Country: US (occurrence: US)
  Receive Date: 20180621
  Receipt Date: 20180621
  Transmission Date: 20181010
  Serious: No
  Sender: FDA-Public Use
  Company Number: None

PATIENT
  Age: 59 Year
  Sex: Male

DRUGS (1)
  1. ADEFOVIR DIPIV TAB 10 MG [Suspect]
     Active Substance: ADEFOVIR DIPIVOXIL

REACTIONS (2)
  - Inability to afford medication [None]
  - Drug dose omission [None]

NARRATIVE: CASE EVENT DATE: 20180607
